FAERS Safety Report 7326357-X (Version None)
Quarter: 2011Q1

REPORT INFORMATION
  Report Type: 
  Country: None (occurrence: None)
  Receive Date: 20110222
  Receipt Date: 20110210
  Transmission Date: 20110831
  Serious: Yes (Hospitalization, Other)
  Sender: FDA-Public Use
  Company Number: 2010SP002316

PATIENT
  Age: 50 Year
  Sex: Female
  Weight: 65 kg

DRUGS (9)
  1. VITAMIN E /00110501/ [Concomitant]
  2. CYCLOBENZAPRINE [Concomitant]
  3. CLARITIN /00917501/ [Concomitant]
  4. CALCIUM [Concomitant]
  5. TYLENOL (CAPLET) [Concomitant]
  6. HORMONES AND RELATED AGENTS [Concomitant]
  7. IBUPROFEN [Concomitant]
  8. CICLESONIDE [Suspect]
     Indication: RHINITIS PERENNIAL
     Dosage: 160 UG; INHALATION
     Route: 055
     Dates: start: 20100513
  9. IMMUNOSUPPRESSIVE AGENTS [Concomitant]

REACTIONS (6)
  - UTERINE POLYP [None]
  - PRECANCEROUS CELLS PRESENT [None]
  - MENORRHAGIA [None]
  - OVARIAN CYST [None]
  - UTERINE LEIOMYOMA [None]
  - ENDOMETRIAL HYPERPLASIA [None]
